FAERS Safety Report 11998121 (Version 1)
Quarter: 2016Q1

REPORT INFORMATION
  Report Type: Report from Study
  Country: US (occurrence: US)
  Receive Date: 20160203
  Receipt Date: 20160203
  Transmission Date: 20160526
  Serious: No
  Sender: FDA-Public Use
  Company Number: US-ABBVIE-15K-163-1416097-00

PATIENT
  Age: 72 Year
  Sex: Female

DRUGS (2)
  1. HUMIRA [Suspect]
     Active Substance: ADALIMUMAB
     Route: 065
  2. HUMIRA [Suspect]
     Active Substance: ADALIMUMAB
     Indication: COLITIS ULCERATIVE
     Dosage: LODING
     Route: 065
     Dates: start: 20150612, end: 20150612

REACTIONS (3)
  - Gingival pain [Recovered/Resolved]
  - Rectal haemorrhage [Recovering/Resolving]
  - Oral pain [Recovered/Resolved]

NARRATIVE: CASE EVENT DATE: 20150620
